FAERS Safety Report 7836850-9 (Version None)
Quarter: 2011Q4

REPORT INFORMATION
  Report Type: 
  Country: None (occurrence: None)
  Receive Date: 20111024
  Receipt Date: 20101206
  Transmission Date: 20120403
  Serious: No
  Sender: FDA-Public Use
  Company Number: US-ABBOTT-10P-163-0690231-00

PATIENT
  Age: 41 Year
  Sex: Female

DRUGS (2)
  1. LUPRON [Suspect]
     Indication: PRODUCT USED FOR UNKNOWN INDICATION
     Dates: start: 20101001
  2. IRON [Concomitant]
     Indication: PRODUCT USED FOR UNKNOWN INDICATION

REACTIONS (5)
  - FEELING COLD [None]
  - ANAEMIA [None]
  - UTERINE HAEMORRHAGE [None]
  - DYSFUNCTIONAL UTERINE BLEEDING [None]
  - HOT FLUSH [None]
